FAERS Safety Report 5098808-5 (Version None)
Quarter: 2006Q3

REPORT INFORMATION
  Report Type: 
  Country: None (occurrence: None)
  Receive Date: 20060907
  Receipt Date: 20060224
  Transmission Date: 20061208
  Serious: Yes (Disabling)
  Sender: FDA-Public Use
  Company Number: US-ROCHE-438218

PATIENT
  Age: 28 Year
  Sex: Male
  Weight: 81.6 kg

DRUGS (8)
  1. ACCUTANE [Suspect]
     Indication: ACNE
     Route: 048
     Dates: start: 19960606, end: 19960702
  2. ACCUTANE [Suspect]
     Dosage: DOSAGE REGIMEN REPORTED: 40 MG PER DAY ALTERNATING WITH 80 MG PER DAY.
     Route: 048
     Dates: start: 19960703, end: 19961115
  3. ACCUTANE [Suspect]
     Route: 048
     Dates: start: 19970523, end: 19970615
  4. ACCUTANE [Suspect]
     Route: 048
     Dates: end: 20030305
  5. ACCUTANE [Suspect]
     Dosage: DOSAGE REGIMEN REPORTED: 80 MG THREE DAYS PER WEEK AND 40 MG FOUR DAYS PER WEEK.
     Route: 048
     Dates: start: 20030306, end: 20030406
  6. ACCUTANE [Suspect]
     Dosage: DOSAGE REGIMEN REPORTED: 80 MG FOUR DAYS PER WEEK AND 40 MG THREE DYS PER WEEK.
     Route: 048
     Dates: start: 20030407, end: 20030430
  7. ACCUTANE [Suspect]
     Dosage: DOSAGE REGIMEN REPORTED: 80 MG FIVE DAYS PER WEEK AND 40 MG TWO DAYS PER WEEK.
     Route: 048
     Dates: start: 20030501, end: 20030601
  8. ACCUTANE [Suspect]
     Route: 048
     Dates: start: 20030602

REACTIONS (15)
  - ANXIETY [None]
  - BLOOD GLUCOSE INCREASED [None]
  - DRY SKIN [None]
  - ECONOMIC PROBLEM [None]
  - EMOTIONAL DISORDER [None]
  - FATIGUE [None]
  - GASTROINTESTINAL DISORDER [None]
  - GENERALISED ANXIETY DISORDER [None]
  - INFLAMMATORY BOWEL DISEASE [None]
  - INJURY [None]
  - INTERNAL INJURY [None]
  - IRRITABLE BOWEL SYNDROME [None]
  - LIP DRY [None]
  - MOOD SWINGS [None]
  - UNEVALUABLE EVENT [None]
